FAERS Safety Report 4867812-1 (Version None)
Quarter: 2005Q4

REPORT INFORMATION
  Report Type: 
  Country: None (occurrence: None)
  Receive Date: 20051227
  Receipt Date: 20051227
  Transmission Date: 20060501
  Serious: No
  Sender: FDA-Public Use
  Company Number: None

PATIENT
  Sex: Female

DRUGS (1)
  1. LEVOTHYROXIN [Suspect]
     Indication: BASEDOW'S DISEASE
     Dosage: 0.88 MCG

REACTIONS (1)
  - DIPLOPIA [None]
